FAERS Safety Report 8515483-5 (Version None)
Quarter: 2012Q3

REPORT INFORMATION
  Report Type: 
  Country: None (occurrence: None)
  Receive Date: 20120717
  Receipt Date: 20120709
  Transmission Date: 20120928
  Serious: Yes (Other)
  Sender: FDA-Public Use
  Company Number: JP-VERTEX PHARMACEUTICALS INC.-AE-2012-005917

PATIENT
  Age: 51 Year
  Sex: Female

DRUGS (8)
  1. RIBAVIRIN [Concomitant]
     Indication: HEPATITIS C
     Route: 048
     Dates: start: 20120307, end: 20120314
  2. RIBAVIRIN [Concomitant]
     Route: 048
     Dates: start: 20120327
  3. PEGINTERFERON ALFA-2B [Concomitant]
     Indication: HEPATITIS C
     Route: 058
     Dates: start: 20120307, end: 20120326
  4. TELAVIC (TELAPREVIR) [Suspect]
     Indication: HEPATITIS C
     Route: 048
     Dates: start: 20120307, end: 20120313
  5. TELAVIC (TELAPREVIR) [Suspect]
     Route: 048
     Dates: start: 20120314
  6. RIBAVIRIN [Concomitant]
     Route: 048
     Dates: start: 20120321, end: 20120326
  7. PEGINTERFERON ALFA-2B [Concomitant]
     Route: 058
     Dates: start: 20120327
  8. RIBAVIRIN [Concomitant]
     Route: 048
     Dates: start: 20120315, end: 20120320

REACTIONS (1)
  - WHITE BLOOD CELL COUNT DECREASED [None]
